FAERS Safety Report 20322108 (Version 2)
Quarter: 2022Q1

REPORT INFORMATION
  Report Type: Spontaneous
  Country: US (occurrence: US)
  Receive Date: 20220111
  Receipt Date: 20220221
  Transmission Date: 20220423
  Serious: Yes (Hospitalization, Other)
  Sender: FDA-Public Use
  Company Number: US-PFIZER INC-202101882157

PATIENT
  Age: 49 Year
  Sex: Male

DRUGS (2)
  1. INLYTA [Suspect]
     Active Substance: AXITINIB
     Dosage: 5 MG
     Dates: start: 20211224
  2. INLYTA [Suspect]
     Active Substance: AXITINIB
     Dosage: 5 MG
     Dates: start: 20211225

REACTIONS (5)
  - Pancreatitis acute [Unknown]
  - Lipase increased [Unknown]
  - C-reactive protein increased [Unknown]
  - Heart rate decreased [Unknown]
  - Flatulence [Unknown]

NARRATIVE: CASE EVENT DATE: 20210101
